FAERS Safety Report 5626006-2 (Version None)
Quarter: 2008Q1

REPORT INFORMATION
  Report Type: 
  Country: None (occurrence: None)
  Receive Date: 20080214
  Receipt Date: 20080205
  Transmission Date: 20080703
  Serious: Yes (Hospitalization)
  Sender: FDA-Public Use
  Company Number: PHRM2008FR00776

PATIENT
  Age: 80 Year
  Sex: Female

DRUGS (8)
  1. NISIS [Suspect]
     Indication: HYPERTENSIVE CARDIOMYOPATHY
     Route: 048
     Dates: end: 20071114
  2. BACTRIM [Concomitant]
     Indication: INFECTION
     Dosage: 2 DF, QD
     Route: 048
  3. HAVLANE [Concomitant]
     Indication: INSOMNIA
     Dosage: 1 DF, QD
     Route: 048
  4. ALDALIX [Suspect]
     Indication: HYPERTENSIVE CARDIOMYOPATHY
     Dosage: 1 DF, QD
     Dates: end: 20071114
  5. LIPANTHYL [Concomitant]
     Indication: DYSLIPIDAEMIA
     Dosage: 160 MG, QD
     Route: 048
     Dates: end: 20071114
  6. ATHYMIL [Concomitant]
     Indication: DEPRESSION
     Dosage: 10 MG, QD
     Route: 048
  7. INIPOMP [Concomitant]
     Indication: GASTROOESOPHAGEAL REFLUX DISEASE
     Dosage: 20 MG, QD
     Route: 048
  8. LEVOTHYROX [Concomitant]
     Indication: HYPOTHYROIDISM
     Dosage: 150 UG, QD
     Route: 048

REACTIONS (15)
  - ACIDOSIS [None]
  - ANAEMIA [None]
  - BLOOD CREATININE INCREASED [None]
  - BLOOD FOLATE DECREASED [None]
  - C-REACTIVE PROTEIN INCREASED [None]
  - CREATININE RENAL CLEARANCE DECREASED [None]
  - DRUG INTERACTION [None]
  - FALL [None]
  - HAEMOCONCENTRATION [None]
  - HYPERKALAEMIA [None]
  - INFLAMMATION [None]
  - PROTEIN TOTAL ABNORMAL [None]
  - RENAL FAILURE ACUTE [None]
  - SERUM FERRITIN INCREASED [None]
  - VITAMIN B12 DECREASED [None]
